FAERS Safety Report 4593969-6 (Version None)
Quarter: 2005Q1

REPORT INFORMATION
  Report Type: 
  Country: None (occurrence: None)
  Receive Date: 20050225
  Receipt Date: 20050214
  Transmission Date: 20050727
  Serious: Yes (Life-Threatening, Hospitalization)
  Sender: FDA-Public Use
  Company Number: GXKR2005GB00585

PATIENT
  Age: 53 Year
  Sex: Female

DRUGS (4)
  1. METFORMIN HCL [Suspect]
     Indication: DIABETES MELLITUS NON-INSULIN-DEPENDENT
     Dosage: 850 MG, TID, ORAL
     Route: 048
     Dates: start: 19850101, end: 20050110
  2. ENALAPRIL MALEATE [Suspect]
     Dosage: 5 MG, QD, ORAL
     Route: 048
     Dates: start: 20040101, end: 20050110
  3. INDOMETHACIN [Suspect]
     Indication: RHEUMATOID ARTHRITIS
     Dosage: 25 MG, TID, ORAL
     Route: 048
     Dates: start: 20020101, end: 20050110
  4. MIXTARD                    (INSULIN INJECTION,ISOPHANE) [Concomitant]

REACTIONS (4)
  - DIALYSIS [None]
  - HEPARIN-INDUCED THROMBOCYTOPENIA [None]
  - PULMONARY EMBOLISM [None]
  - RENAL FAILURE ACUTE [None]
